FAERS Safety Report 7895649-8 (Version None)
Quarter: 2011Q4

REPORT INFORMATION
  Report Type: 
  Country: None (occurrence: None)
  Receive Date: 20111024
  Receipt Date: 20101206
  Transmission Date: 20120403
  Serious: Yes (Hospitalization)
  Sender: FDA-Public Use
  Company Number: 2010SP063476

PATIENT
  Age: 79 Year
  Sex: Male

DRUGS (3)
  1. ISONIAZID [Suspect]
     Indication: PRODUCT USED FOR UNKNOWN INDICATION
     Dosage: 300 MG; PO
     Route: 048
  2. TICE BCG [Suspect]
     Indication: PRODUCT USED FOR UNKNOWN INDICATION
     Dosage: INVES
     Route: 043
     Dates: start: 20100401, end: 20100501
  3. UNSPECIFIED ANTIBIOTIC [Concomitant]

REACTIONS (1)
  - EPIDIDYMITIS TUBERCULOUS [None]
